FAERS Safety Report 20894111 (Version 1)
Quarter: 2022Q2

REPORT INFORMATION
  Report Type: Spontaneous
  Country: US (occurrence: US)
  Receive Date: 20220531
  Receipt Date: 20220531
  Transmission Date: 20220721
  Serious: Yes (Other)
  Sender: FDA-Public Use
  Company Number: US-MYLANLABS-2022M1039424

PATIENT
  Age: 75 Year
  Sex: Male

DRUGS (6)
  1. PREDNISONE [Suspect]
     Active Substance: PREDNISONE
     Indication: Pityriasis rubra pilaris
     Dosage: UNK
     Route: 065
  2. ACITRETIN [Suspect]
     Active Substance: ACITRETIN
     Indication: Pityriasis rubra pilaris
     Dosage: 25 MILLIGRAM, BID
     Route: 065
  3. ACITRETIN [Suspect]
     Active Substance: ACITRETIN
     Dosage: 25 MILLIGRAM, QD
     Route: 065
  4. ACITRETIN [Suspect]
     Active Substance: ACITRETIN
     Dosage: 25 MILLIGRAM, QD
     Route: 065
  5. APREMILAST [Suspect]
     Active Substance: APREMILAST
     Indication: Pityriasis rubra pilaris
     Dosage: 30 MILLIGRAM, BID
     Route: 065
  6. TRIAMCINOLONE [Concomitant]
     Active Substance: TRIAMCINOLONE
     Indication: Pityriasis rubra pilaris
     Dosage: UNK
     Route: 065

REACTIONS (2)
  - Drug ineffective [Unknown]
  - Off label use [Unknown]
